FAERS Safety Report 12380054 (Version 1)
Quarter: 2016Q2

REPORT INFORMATION
  Report Type: Spontaneous
  Country: KE (occurrence: KE)
  Receive Date: 20160518
  Receipt Date: 20160518
  Transmission Date: 20160815
  Serious: Yes (Hospitalization, Other)
  Sender: FDA-Public Use
  Company Number: KE-ALVOGEN-2016-ALVOGEN-024388

PATIENT
  Age: 63 Year
  Sex: Female

DRUGS (1)
  1. ZESTORETIC [Suspect]
     Active Substance: HYDROCHLOROTHIAZIDE\LISINOPRIL
     Indication: HYPERTENSION
     Route: 048

REACTIONS (3)
  - Dyspnoea [Recovered/Resolved]
  - Angioedema [Recovered/Resolved]
  - Dysphonia [Recovered/Resolved]
